FAERS Safety Report 7406929-4 (Version None)
Quarter: 2011Q2

REPORT INFORMATION
  Report Type: 
  Country: None (occurrence: None)
  Receive Date: 20110411
  Receipt Date: 20110315
  Transmission Date: 20111010
  Serious: No
  Sender: FDA-Public Use
  Company Number: US-BAYER-2011-025318

PATIENT
  Age: 63 Year
  Sex: Female
  Weight: 73 kg

DRUGS (5)
  1. LANTUS [Concomitant]
  2. ZAROXOLYN [Concomitant]
  3. ALEVE (CAPLET) [Suspect]
     Indication: ARTHRITIS
     Dosage: 2 DF, ONCE
     Route: 048
     Dates: start: 20110315, end: 20110315
  4. FUROSEMIDE [Concomitant]
  5. UNKNOWN STUDY MEDICATION FOR SHINGLES [Concomitant]

REACTIONS (1)
  - PRURITUS [None]
